FAERS Safety Report 12319850 (Version 1)
Quarter: 2016Q2

REPORT INFORMATION
  Report Type: Spontaneous
  Country: US (occurrence: US)
  Receive Date: 20160429
  Receipt Date: 20160429
  Transmission Date: 20160815
  Serious: No
  Sender: FDA-Public Use
  Company Number: US-ROCHE-1629900

PATIENT
  Sex: Male
  Weight: 124.85 kg

DRUGS (1)
  1. ESBRIET [Suspect]
     Active Substance: PIRFENIDONE
     Indication: IDIOPATHIC PULMONARY FIBROSIS
     Dosage: 267 MG 2 CAPSULES THRICE A DAY
     Route: 048

REACTIONS (2)
  - Sunburn [Unknown]
  - Photosensitivity reaction [Unknown]
